FAERS Safety Report 12379104 (Version 1)
Quarter: 2016Q2

REPORT INFORMATION
  Report Type: Spontaneous
  Country: US (occurrence: US)
  Receive Date: 20160517
  Receipt Date: 20160517
  Transmission Date: 20160815
  Serious: No
  Sender: FDA-Public Use
  Company Number: ADR-2015-01092

PATIENT
  Age: 72 Year
  Sex: Male

DRUGS (2)
  1. BACLOFEN. [Suspect]
     Active Substance: BACLOFEN
     Route: 048
  2. BACLOFEN. [Suspect]
     Active Substance: BACLOFEN
     Dosage: 226.1
     Route: 037

REACTIONS (16)
  - Micturition urgency [Unknown]
  - Loss of control of legs [Unknown]
  - Muscle spasticity [Unknown]
  - Movement disorder [Unknown]
  - Muscle spasms [Unknown]
  - Fall [Unknown]
  - Muscular weakness [Unknown]
  - Sleep disorder [Unknown]
  - Pruritus [Unknown]
  - Performance status decreased [Unknown]
  - Hyperaesthesia [Unknown]
  - Paraesthesia [Unknown]
  - Restless legs syndrome [Unknown]
  - Urinary retention [Unknown]
  - Chills [Unknown]
  - Overdose [Unknown]

NARRATIVE: CASE EVENT DATE: 201505
